FAERS Safety Report 7942136-4 (Version None)
Quarter: 2011Q4

REPORT INFORMATION
  Report Type: 
  Country: None (occurrence: None)
  Receive Date: 20111123
  Receipt Date: 20111123
  Transmission Date: 20120403
  Serious: No
  Sender: FDA-Public Use
  Company Number: None

PATIENT
  Age: 62 Year
  Sex: Female
  Weight: 53.5244 kg

DRUGS (2)
  1. LANSOPRAZOLE [Suspect]
     Indication: HELICOBACTER INFECTION
     Dosage: 2  2 TIMES A DAY
     Dates: start: 20111027
  2. FLURITHROMYCIN 500MG SANDOZ [Suspect]
     Dosage: 2  2 TIMES A DAY
     Dates: start: 20111027

REACTIONS (5)
  - ASTHENIA [None]
  - ACTIVITIES OF DAILY LIVING IMPAIRED [None]
  - HEADACHE [None]
  - IMPAIRED DRIVING ABILITY [None]
  - BALANCE DISORDER [None]
